FAERS Safety Report 10174445 (Version 2)
Quarter: 2014Q2

REPORT INFORMATION
  Report Type: Spontaneous
  Country: IL (occurrence: IL)
  Receive Date: 20140515
  Receipt Date: 20140515
  Transmission Date: 20141212
  Serious: Yes (Other)
  Sender: FDA-Public Use
  Company Number: IL-ASTRAZENECA-2014SE30081

PATIENT
  Age: 8 Year
  Sex: Female

DRUGS (1)
  1. EMLA [Suspect]
     Route: 061

REACTIONS (2)
  - Generalised tonic-clonic seizure [Recovered/Resolved]
  - Methaemoglobinaemia [Recovered/Resolved]
